FAERS Safety Report 8589330 (Version 2)
Quarter: 2012Q4

REPORT INFORMATION
  Report Type: Report from Study
  Country: FR (occurrence: FR)
  Receive Date: 20120531
  Receipt Date: 20121207
  Transmission Date: 20130627
  Serious: Yes (Hospitalization)
  Sender: FDA-Public Use
  Company Number: FR-ABBOTT-12P-056-0937915-00

PATIENT
  Age: 25 Year
  Sex: Female
  Weight: 71 kg

DRUGS (3)
  1. KALETRA TABLETS [Suspect]
     Indication: HIV INFECTION
     Route: 048
     Dates: start: 20100624
  2. KALETRA TABLETS [Suspect]
     Indication: PROPHYLAXIS
     Route: 048
     Dates: start: 20100824, end: 20100919
  3. TARDYFERON B9 [Concomitant]
     Indication: ANAEMIA
     Route: 048
     Dates: start: 20100520, end: 20100923

REACTIONS (4)
  - Cholestasis [Unknown]
  - Hepatocellular injury [Unknown]
  - Metrorrhagia [Recovered/Resolved]
  - Placenta praevia [Recovered/Resolved]
